FAERS Safety Report 21566591 (Version 1)
Quarter: 2022Q4

REPORT INFORMATION
  Report Type: Spontaneous
  Country: US (occurrence: US)
  Receive Date: 20221108
  Receipt Date: 20221108
  Transmission Date: 20230113
  Serious: Yes (Other)
  Sender: FDA-Public Use
  Company Number: US-PFIZER INC-PV202200098156

PATIENT
  Age: 87 Year
  Sex: Female
  Weight: 73 kg

DRUGS (11)
  1. AZULFIDINE [Suspect]
     Active Substance: SULFASALAZINE
     Indication: Rheumatoid arthritis
     Dosage: 500 MG, DAILY
     Route: 048
     Dates: start: 20190508, end: 20190805
  2. AZULFIDINE [Suspect]
     Active Substance: SULFASALAZINE
     Dosage: 500 MG, DAILY
     Route: 048
     Dates: start: 20191104, end: 20200830
  3. ENBREL [Concomitant]
     Active Substance: ETANERCEPT
     Indication: Psoriatic arthropathy
     Dosage: UNK
     Dates: start: 201101
  4. ENBREL [Concomitant]
     Active Substance: ETANERCEPT
     Indication: Spondylitis
  5. SYNTHROID [Concomitant]
     Active Substance: LEVOTHYROXINE SODIUM
     Dosage: UNK
  6. NEURONTIN [Concomitant]
     Active Substance: GABAPENTIN
     Dosage: UNK
  7. LISINOPRIL [Concomitant]
     Active Substance: LISINOPRIL
     Dosage: UNK
     Dates: end: 20190711
  8. ASPIRIN [Concomitant]
     Active Substance: ASPIRIN
     Dosage: UNK
  9. ALENDRONATE [Concomitant]
     Active Substance: ALENDRONATE SODIUM
     Dosage: UNK
     Dates: start: 20190211, end: 20190508
  10. RECLAST [Concomitant]
     Active Substance: ZOLEDRONIC ACID
     Dosage: UNK
     Dates: start: 20190710, end: 20190710
  11. ROBAXIN [Concomitant]
     Active Substance: METHOCARBAMOL
     Dosage: UNK

REACTIONS (1)
  - Drug ineffective [Unknown]

NARRATIVE: CASE EVENT DATE: 20190805
